FAERS Safety Report 21147557 (Version 1)
Quarter: 2022Q3

REPORT INFORMATION
  Report Type: Spontaneous
  Country: CA (occurrence: CA)
  Receive Date: 20220729
  Receipt Date: 20220729
  Transmission Date: 20221026
  Serious: Yes (Other)
  Sender: FDA-Public Use
  Company Number: CA-GLAXOSMITHKLINE-CA2022AMR110371

PATIENT

DRUGS (18)
  1. LAMOTRIGINE [Interacting]
     Active Substance: LAMOTRIGINE
     Indication: Epilepsy
     Dosage: 25 MG, BID,  2 EVERY 1 DAYS
     Route: 065
  2. LAMOTRIGINE [Interacting]
     Active Substance: LAMOTRIGINE
     Dosage: 125 MG, BID,  2 EVERY 1 DAYS
     Route: 065
  3. LAMOTRIGINE [Interacting]
     Active Substance: LAMOTRIGINE
     Indication: Epilepsy
     Dosage: 50 MG, BID,  2 EVERY 1 DAYS
     Route: 065
  4. LAMOTRIGINE [Interacting]
     Active Substance: LAMOTRIGINE
     Dosage: 150 MG, BID,  2 EVERY 1 DAYS
     Route: 065
  5. LAMOTRIGINE [Interacting]
     Active Substance: LAMOTRIGINE
     Indication: Epilepsy
     Dosage: 50 MG, BID, 2 EVERY 1 DAYS
     Route: 065
  6. LAMOTRIGINE [Interacting]
     Active Substance: LAMOTRIGINE
     Dosage: 50 MG, BID, 2 EVERY 1 DAYS
     Route: 065
  7. LAMOTRIGINE [Interacting]
     Active Substance: LAMOTRIGINE
     Dosage: 125 MG, BID,  2 EVERY 1 DAYS
     Route: 065
  8. LAMOTRIGINE [Interacting]
     Active Substance: LAMOTRIGINE
     Dosage: 175 MG, BID,  2 EVERY 1 DAYS
     Route: 065
  9. LAMOTRIGINE [Interacting]
     Active Substance: LAMOTRIGINE
     Indication: Epilepsy
     Dosage: 25 MG, QD, 1 EVERY 24 HOURS, TABLET
  10. DIVALPROEX SODIUM [Interacting]
     Active Substance: DIVALPROEX SODIUM
     Indication: Epilepsy
     Dosage: 500 MG, BID,  2 EVERY 1 DAYS
     Route: 065
  11. DIVALPROEX SODIUM [Interacting]
     Active Substance: DIVALPROEX SODIUM
     Dosage: 1000 MG, BID,  2 EVERY 1 DAYS
     Route: 065
  12. DIVALPROEX SODIUM [Interacting]
     Active Substance: DIVALPROEX SODIUM
     Dosage: 500 MG, BID,  2 EVERY 1 DAYS
     Route: 065
  13. DEPAKOTE [Interacting]
     Active Substance: DIVALPROEX SODIUM
     Indication: Epilepsy
     Dosage: 500 MG, BID,  2 EVERY 1 DAYS
     Route: 065
  14. DEPAKOTE [Interacting]
     Active Substance: DIVALPROEX SODIUM
     Dosage: 500 MG, BID, 2 EVERY 1 DAYS
     Route: 065
  15. DEPAKOTE [Interacting]
     Active Substance: DIVALPROEX SODIUM
     Dosage: 1000 MG, BID, 2 EVERY 1 DAYS
     Route: 065
  16. MODAFINIL [Concomitant]
     Active Substance: MODAFINIL
     Indication: Narcolepsy
     Dosage: 400 MG, QD, 1 EVERY 24 HOURS
     Route: 065
  17. MODAFINIL [Concomitant]
     Active Substance: MODAFINIL
     Dosage: 1 EVERY 24 HOURS
     Route: 065
  18. TOPIRAMATE [Concomitant]
     Active Substance: TOPIRAMATE
     Indication: Migraine
     Dosage: 25 MG, QD, 1 EVERY 24 HOURS
     Route: 065

REACTIONS (17)
  - Allergic reaction to excipient [Recovered/Resolved]
  - Balance disorder [Not Recovered/Not Resolved]
  - Disorientation [Not Recovered/Not Resolved]
  - Disturbance in attention [Not Recovered/Not Resolved]
  - Dizziness [Not Recovered/Not Resolved]
  - Drug interaction [Not Recovered/Not Resolved]
  - Haemorrhage [Recovered/Resolved]
  - Hallucination [Recovered/Resolved]
  - Loss of personal independence in daily activities [Recovered/Resolved]
  - Migraine [Not Recovered/Not Resolved]
  - Near death experience [Recovered/Resolved]
  - Rash [Recovered/Resolved]
  - Seizure [Not Recovered/Not Resolved]
  - Suicidal ideation [Recovered/Resolved]
  - Therapeutic product effect decreased [Not Recovered/Not Resolved]
  - Violence-related symptom [Recovered/Resolved]
  - Vision blurred [Not Recovered/Not Resolved]
